FAERS Safety Report 11792687 (Version 1)
Quarter: 2015Q4

REPORT INFORMATION
  Report Type: Spontaneous
  Country: TR (occurrence: None)
  Receive Date: 20151130
  Receipt Date: 20151130
  Transmission Date: 20160305
  Serious: Yes (Other)
  Sender: FDA-Public Use
  Company Number: 2015R1-106663

PATIENT
  Age: 14 Year
  Sex: Female

DRUGS (1)
  1. PHENYTOIN (PHENYTOIN) UNKNOWN [Suspect]
     Active Substance: PHENYTOIN
     Indication: STATUS EPILEPTICUS

REACTIONS (1)
  - Acute generalised exanthematous pustulosis [None]
